FAERS Safety Report 7882558-3 (Version None)
Quarter: 2011Q4

REPORT INFORMATION
  Report Type: 
  Country: None (occurrence: None)
  Receive Date: 20111101
  Receipt Date: 20110616
  Transmission Date: 20120403
  Serious: Yes (Other)
  Sender: FDA-Public Use
  Company Number: US-AMGEN-USASP2011029025

PATIENT
  Age: 59 Year
  Sex: Female
  Weight: 86.168 kg

DRUGS (6)
  1. ZOLOFT [Concomitant]
  2. ALEVE [Concomitant]
  3. PLAQUENIL [Concomitant]
  4. ENBREL [Suspect]
     Indication: JUVENILE ARTHRITIS
     Dosage: 50 MG, QWK
     Dates: start: 20101118, end: 20110501
  5. PREVACID [Concomitant]
  6. RESTASIS [Concomitant]

REACTIONS (2)
  - CONVULSION [None]
  - ANTINUCLEAR ANTIBODY POSITIVE [None]
